FAERS Safety Report 4890566-X (Version None)
Quarter: 2006Q1

REPORT INFORMATION
  Report Type: 
  Country: None (occurrence: None)
  Receive Date: 20060125
  Receipt Date: 20060116
  Transmission Date: 20060701
  Serious: Yes (Hospitalization)
  Sender: FDA-Public Use
  Company Number: JP-JNJFOC-20051005677

PATIENT
  Sex: Female
  Weight: 48 kg

DRUGS (16)
  1. REMICADE [Suspect]
     Route: 042
  2. REMICADE [Suspect]
     Route: 042
  3. REMICADE [Suspect]
     Route: 042
  4. REMICADE [Suspect]
     Indication: RHEUMATOID ARTHRITIS
     Route: 042
  5. RHEUMATREX [Concomitant]
     Route: 048
  6. RHEUMATREX [Concomitant]
     Route: 048
  7. RHEUMATREX [Concomitant]
     Route: 048
  8. RHEUMATREX [Concomitant]
     Route: 048
  9. RHEUMATREX [Concomitant]
     Indication: RHEUMATOID ARTHRITIS
     Route: 048
  10. PREDONINE [Concomitant]
     Indication: RHEUMATOID ARTHRITIS
     Route: 048
  11. AZULFIDINE EN-TABS [Concomitant]
     Indication: RHEUMATOID ARTHRITIS
     Route: 048
  12. BREDININ [Concomitant]
     Indication: RHEUMATOID ARTHRITIS
     Route: 048
  13. ADRENAL HORMONE PREPARATIONS [Concomitant]
     Indication: RHEUMATOID ARTHRITIS
     Route: 065
  14. ACTONEL [Concomitant]
     Route: 048
  15. CYANOCOBALAMIN [Concomitant]
     Route: 048
  16. SELBEX [Concomitant]
     Route: 048

REACTIONS (2)
  - PERITONEAL TUBERCULOSIS [None]
  - TUBERCULOUS PLEURISY [None]
